FAERS Safety Report 10136269 (Version 3)
Quarter: 2014Q2

REPORT INFORMATION
  Report Type: Report from Study
  Country: GB (occurrence: GB)
  Receive Date: 20140429
  Receipt Date: 20140512
  Transmission Date: 20141212
  Serious: Yes (Hospitalization)
  Sender: FDA-Public Use
  Company Number: GB-ROCHE-1385802

PATIENT
  Age: 70 Year
  Sex: Male
  Weight: 74.6 kg

DRUGS (9)
  1. RITUXIMAB [Suspect]
     Indication: B-CELL LYMPHOMA
     Route: 042
  2. RHUPH20/RITUXIMAB [Suspect]
     Indication: B-CELL LYMPHOMA
     Dosage: DATE FO LAST DOSE PRIOR TO SAE 01/APR/2014
     Route: 058
     Dates: start: 20131208
  3. ALLOPURINOL [Concomitant]
     Route: 065
     Dates: start: 20131209, end: 20140109
  4. CO-TRIMOXAZOLE [Concomitant]
     Route: 065
     Dates: start: 20131209
  5. LANSOPRAZOLE [Concomitant]
     Route: 065
     Dates: start: 2011, end: 20140102
  6. CANDESARTAN [Concomitant]
     Indication: HYPERTENSION
     Route: 065
     Dates: start: 2003
  7. RANITIDINE [Concomitant]
     Route: 065
     Dates: start: 20140102
  8. METOCLOPRAMIDE [Concomitant]
     Indication: PROPHYLAXIS OF NAUSEA AND VOMITING
     Route: 065
     Dates: start: 20131209
  9. IBUPROFEN [Concomitant]
     Indication: THROMBOPHLEBITIS
     Route: 065
     Dates: start: 20140227

REACTIONS (1)
  - Neutropenic sepsis [Recovered/Resolved]
